FAERS Safety Report 9316723 (Version 1)
Quarter: 2013Q2

REPORT INFORMATION
  Report Type: Spontaneous
  Country: BE (occurrence: None)
  Receive Date: 20130523
  Receipt Date: 20130523
  Transmission Date: 20140414
  Serious: Yes (Hospitalization)
  Sender: FDA-Public Use
  Company Number: SYM-2013-04054

PATIENT
  Age: 49 Year
  Sex: Female

DRUGS (11)
  1. 5 FU [Suspect]
     Indication: COLORECTAL CANCER METASTATIC
     Route: 040
  2. AFLIBERCEPT [Suspect]
     Indication: COLORECTAL CANCER METASTATIC
     Route: 041
     Dates: start: 20130424, end: 20130424
  3. IRINOTECAN [Suspect]
     Indication: COLORECTAL CANCER METASTATIC
     Route: 041
  4. LEUCOVORIN [Suspect]
     Indication: COLORECTAL CANCER METASTATIC
     Route: 041
  5. PRAXIPARIN (HEPARIN-FRACTION, CALCIUM SALT) (HEPARIN-FRACTION, CALCIUM SALT) [Concomitant]
  6. LITICAN (ALIZAPRIDE HYDROCHLORIDE) (ALIZAPRIDE HYDROCHLORIDE) [Concomitant]
  7. PARACETAMOL (PARACETAMOL) (PARACETAMOL) [Concomitant]
  8. XANAX [Concomitant]
  9. PANTOPRAZOLE (PANTOPRAZOLE) (PANTOPRAZOLE) [Concomitant]
  10. SOLU-MEDROL (METHYLPREDNISOLONE SODIUM SUCCINATE) ( (METHYLPREDNISOLONE SODIUM SUCCINATE)) [Concomitant]
  11. SOLUTIONS FOR PARENTERAL NUTRITION (SOLUTIONS FOR PARENTERAL NUTRITION) [Concomitant]

REACTIONS (1)
  - Intestinal perforation [None]
